FAERS Safety Report 11038586 (Version 2)
Quarter: 2015Q2

REPORT INFORMATION
  Report Type: Spontaneous
  Country: US (occurrence: US)
  Receive Date: 20150416
  Receipt Date: 20150422
  Transmission Date: 20150821
  Serious: No
  Sender: FDA-Public Use
  Company Number: US-EISAI MEDICAL RESEARCH-EC-2015-005337

PATIENT
  Age: 52 Year
  Sex: Female

DRUGS (9)
  1. ZONEGRAN [Suspect]
     Active Substance: ZONISAMIDE
     Indication: EPILEPSY
     Route: 048
     Dates: start: 20150218, end: 20150303
  2. TOPAMAX [Concomitant]
     Active Substance: TOPIRAMATE
     Route: 048
  3. LEVOTHYROXINE [Concomitant]
     Active Substance: LEVOTHYROXINE
     Indication: THYROID THERAPY
  4. ZONEGRAN [Suspect]
     Active Substance: ZONISAMIDE
     Route: 048
     Dates: start: 20150304, end: 20150309
  5. ZONEGRAN [Suspect]
     Active Substance: ZONISAMIDE
     Route: 048
     Dates: start: 20150310, end: 20150317
  6. LAMOTRIGINE. [Concomitant]
     Active Substance: LAMOTRIGINE
     Route: 048
  7. VIMPAT [Concomitant]
     Active Substance: LACOSAMIDE
     Route: 048
  8. VIMPAT [Concomitant]
     Active Substance: LACOSAMIDE
     Route: 048
  9. VITAMIN D [Concomitant]
     Active Substance: CHOLECALCIFEROL

REACTIONS (8)
  - Rash [Recovered/Resolved]
  - Fall [Recovered/Resolved]
  - Menorrhagia [Recovered/Resolved]
  - Contusion [Recovered/Resolved]
  - Rash pruritic [Not Recovered/Not Resolved]
  - Dizziness [Recovered/Resolved]
  - Vision blurred [Recovered/Resolved]
  - Tendon injury [Not Recovered/Not Resolved]

NARRATIVE: CASE EVENT DATE: 20150309
